FAERS Safety Report 16860436 (Version 4)
Quarter: 2019Q4

REPORT INFORMATION
  Report Type: Spontaneous
  Country: BR (occurrence: BR)
  Receive Date: 20190927
  Receipt Date: 20191217
  Transmission Date: 20200122
  Serious: Yes (Other)
  Sender: FDA-Public Use
  Company Number: BR-SA-2017SA165970

PATIENT
  Age: 71 Year
  Sex: Female
  Weight: 57 kg

DRUGS (12)
  1. LISINOPRIL. [Concomitant]
     Active Substance: LISINOPRIL
     Indication: HYPERTENSION
     Dosage: UNK UNK, QD ONCE AT MORNING
     Route: 048
     Dates: start: 2009
  2. LANTUS SOLOSTAR [Suspect]
     Active Substance: INSULIN GLARGINE
     Dosage: 8 IU, QD
     Route: 065
  3. ATORVASTATIN [Concomitant]
     Active Substance: ATORVASTATIN
     Indication: BLOOD CHOLESTEROL
     Dosage: UNK UNK, HS ONCE AT NIGHT
     Route: 048
     Dates: start: 2009
  4. ASPIRINA PREVENT [Concomitant]
     Active Substance: ASPIRIN
     Indication: ANTICOAGULATION DRUG LEVEL
     Dosage: 1 DF, QD
     Route: 048
  5. AMLODIPINE [Concomitant]
     Active Substance: AMLODIPINE BESYLATE
     Indication: HYPERTENSION
     Dosage: UNK UNK, HS ONCE AT NIGHT
     Route: 048
     Dates: start: 2015
  6. CHOLECALCIFEROL [Concomitant]
     Active Substance: CHOLECALCIFEROL
     Indication: SUPPLEMENTATION THERAPY
     Dosage: UNK UNK, QW ONCE WEEKLY
     Route: 048
     Dates: start: 2019
  7. LANTUS SOLOSTAR [Suspect]
     Active Substance: INSULIN GLARGINE
     Indication: DIABETES MELLITUS
     Dosage: UNKNOWN
     Route: 051
  8. LANTUS SOLOSTAR [Suspect]
     Active Substance: INSULIN GLARGINE
     Dosage: FROM  8 TO 12
     Route: 058
     Dates: start: 2012
  9. LANTUS SOLOSTAR [Suspect]
     Active Substance: INSULIN GLARGINE
     Dosage: 15 IU
     Route: 058
     Dates: start: 2012
  10. GALVUS [Concomitant]
     Active Substance: VILDAGLIPTIN
     Indication: DIABETES MELLITUS
     Dosage: 2 DF, QD
     Route: 048
     Dates: start: 2014
  11. PURAN [Concomitant]
     Active Substance: LEVOTHYROXINE SODIUM
     Indication: THYROID DISORDER
     Dosage: 1 DF, QD
     Route: 048
  12. LABIRIN [Concomitant]
     Active Substance: BETAHISTINE
     Indication: LABYRINTHITIS
     Dosage: TWICE DAILY, ONE AT MORNING AND ONE AT NIGHT
     Route: 048
     Dates: start: 2013

REACTIONS (10)
  - Blood glucose increased [Recovered/Resolved]
  - Intentional product use issue [Unknown]
  - Intentional product misuse [Unknown]
  - Drug ineffective [Recovered/Resolved]
  - Neuropathy peripheral [Recovering/Resolving]
  - Product storage error [Unknown]
  - Hypoglycaemia [Unknown]
  - Hypoglycaemia [Unknown]
  - Incorrect dose administered [Unknown]
  - Multiple use of single-use product [Unknown]

NARRATIVE: CASE EVENT DATE: 20190930
